FAERS Safety Report 9970526 (Version 1)
Quarter: 2014Q1

REPORT INFORMATION
  Report Type: Spontaneous
  Country: US (occurrence: None)
  Receive Date: 20140305
  Receipt Date: 20140305
  Transmission Date: 20141002
  Serious: Yes (Disabling)
  Sender: FDA-Public Use
  Company Number: None

PATIENT
  Age: 51 Year
  Sex: Female
  Weight: 58.97 kg

DRUGS (2)
  1. EFFEXOR [Suspect]
     Indication: GENERALISED ANXIETY DISORDER
     Dosage: 1 PILL ONCE DAILY
     Route: 048
  2. ATIVAN [Suspect]
     Indication: DRUG THERAPY
     Dosage: 1 PILL TWICE DAILY
     Route: 048

REACTIONS (8)
  - Dry mouth [None]
  - Depression [None]
  - Asthenia [None]
  - Tooth loss [None]
  - Weight decreased [None]
  - Gingival disorder [None]
  - Impaired work ability [None]
  - Economic problem [None]
